FAERS Safety Report 6404927-0 (Version None)
Quarter: 2009Q4

REPORT INFORMATION
  Report Type: 
  Country: None (occurrence: None)
  Receive Date: 20091013
  Receipt Date: 20091005
  Transmission Date: 20100525
  Serious: Yes (Other)
  Sender: FDA-Public Use
  Company Number: 2009SP029278

PATIENT
  Age: 67 Year
  Sex: Male

DRUGS (1)
  1. CELESTONE SOLUSPAN [Suspect]
     Indication: PAIN IN EXTREMITY
     Dosage: ; ONCE; IA
     Route: 014
     Dates: start: 20090929, end: 20090929

REACTIONS (3)
  - HYPERTENSIVE CRISIS [None]
  - PRURITUS [None]
  - RASH PAPULAR [None]
